FAERS Safety Report 8156591-0 (Version None)
Quarter: 2012Q1

REPORT INFORMATION
  Report Type: 
  Country: None (occurrence: None)
  Receive Date: 20120222
  Receipt Date: 20120216
  Transmission Date: 20120608
  Serious: Yes (Other)
  Sender: FDA-Public Use
  Company Number: US-PFIZER INC-2011097776

PATIENT
  Sex: Female
  Weight: 91.61 kg

DRUGS (9)
  1. LYRICA [Suspect]
     Indication: FIBROMYALGIA
     Dosage: 150 MG ONE CAPSULE IN MORNING AND TWO CAPSULES IN EVENING
     Route: 048
     Dates: start: 20100101, end: 20110101
  2. PAXIL [Concomitant]
     Indication: ANXIETY
     Dosage: 10 MG OR 40 MG
     Route: 048
  3. PAXIL [Concomitant]
     Indication: PANIC ATTACK
  4. LEVOTHYROXINE [Concomitant]
     Indication: HYPERTHYROIDISM
     Dosage: 75 UG, UNK
  5. AMITRIPTYLINE [Concomitant]
     Indication: DEPRESSION
     Dosage: 50 MG, 1X/DAY
  6. REMICADE [Suspect]
     Indication: RHEUMATOID ARTHRITIS
     Dosage: UNKNOWN DOSE EVERY 5 WEEKS
     Route: 042
  7. REMICADE [Suspect]
     Dosage: 100 MG 5 VIALS EVERY 4 WEEKS
  8. VICOPROFEN [Concomitant]
     Indication: PAIN
     Dosage: 7.5/200 MG TWO TABLETS FOUR TIMES A DAY
     Route: 048
  9. PAXIL [Concomitant]
     Indication: DEPRESSION

REACTIONS (2)
  - WITHDRAWAL SYNDROME [None]
  - PAIN [None]
